FAERS Safety Report 14745808 (Version 1)
Quarter: 2018Q2

REPORT INFORMATION
  Report Type: Other
  Country: GB (occurrence: GB)
  Receive Date: 20180411
  Receipt Date: 20180411
  Transmission Date: 20180711
  Serious: Yes (Other)
  Sender: FDA-Public Use
  Company Number: GB-LUPIN PHARMACEUTICALS INC.-2018-02808

PATIENT
  Age: 1 Week
  Sex: Female
  Weight: 3.17 kg

DRUGS (4)
  1. CEFALEXIN [Suspect]
     Active Substance: CEPHALEXIN
     Indication: INFECTION PROPHYLAXIS
     Dosage: 1500 MG, QD (MOTHER TOOK INTRAVENOUSLY FOR 2 DAYS AND THEN ORALLY FOR 7)
     Route: 063
     Dates: start: 20170820
  2. METRONIDAZOLE. [Suspect]
     Active Substance: METRONIDAZOLE
     Dosage: 600 MG, QD (MOTHER TOOK INTRAVENOUSLY FOR 2 DAYS AND THEN ORALLY FOR 7)
     Route: 063
     Dates: end: 20170829
  3. CEFALEXIN [Suspect]
     Active Substance: CEPHALEXIN
     Dosage: 1500 MG, QD (MOTHER TOOK INTRAVENOUSLY FOR 2 DAYS AND THEN ORALLY FOR 7)
     Route: 063
     Dates: end: 20170829
  4. METRONIDAZOLE. [Suspect]
     Active Substance: METRONIDAZOLE
     Indication: INFECTION PROPHYLAXIS
     Dosage: 600 MG, QD (MOTHER TOOK INTRAVENOUSLY FOR 2 DAYS AND THEN ORALLY FOR 7)
     Route: 063
     Dates: start: 20170820

REACTIONS (4)
  - Lactose intolerance [Unknown]
  - Abdominal pain [Unknown]
  - Oral candidiasis [Unknown]
  - Haematochezia [Unknown]
